FAERS Safety Report 5934970-7 (Version None)
Quarter: 2008Q4

REPORT INFORMATION
  Report Type: 
  Country: None (occurrence: None)
  Receive Date: 20081028
  Receipt Date: 20081020
  Transmission Date: 20090506
  Serious: Yes (Other)
  Sender: FDA-Public Use
  Company Number: CHPA2008US18117

PATIENT
  Age: 84 Year
  Sex: Female

DRUGS (2)
  1. MAALOX ANTACID/ANTIGAS MAX LIQ (NCH) (MAGNESIUM HYDROXIDE, ALUMINIUM H [Suspect]
     Indication: DYSPEPSIA
     Dosage: TABLESPOON, QD OR BID PRN, ORAL
     Route: 048
     Dates: start: 20030101
  2. IBUPROFEN [Concomitant]

REACTIONS (3)
  - DIABETES MELLITUS [None]
  - HYPERTENSION [None]
  - WRONG TECHNIQUE IN DRUG USAGE PROCESS [None]
